FAERS Safety Report 23482655 (Version 1)
Quarter: 2024Q1

REPORT INFORMATION
  Report Type: Report from Study
  Country: US (occurrence: US)
  Receive Date: 20240205
  Receipt Date: 20240205
  Transmission Date: 20240409
  Serious: Yes (Other)
  Sender: FDA-Public Use
  Company Number: US-OTSUKA-2024_002536

PATIENT
  Age: 35 Year
  Sex: Female
  Weight: 99.77 kg

DRUGS (7)
  1. ARIPIPRAZOLE [Suspect]
     Active Substance: ARIPIPRAZOLE
     Indication: Bipolar disorder
     Dosage: 15 MG
     Route: 065
     Dates: start: 20230712
  2. ARIPIPRAZOLE [Suspect]
     Active Substance: ARIPIPRAZOLE
     Dosage: 7.5 MG
     Route: 065
     Dates: start: 20230816
  3. HYDROXYZINE PAMOATE [Concomitant]
     Active Substance: HYDROXYZINE PAMOATE
     Indication: Anxiety
     Dosage: UNK
     Route: 065
     Dates: start: 20230712, end: 20230823
  4. DULOXETINE [Concomitant]
     Active Substance: DULOXETINE
     Indication: Depression
     Dosage: UNK
     Route: 065
     Dates: start: 20230712, end: 20230823
  5. CLONIDINE [Concomitant]
     Active Substance: CLONIDINE
     Indication: Irritability
     Dosage: UNK
     Route: 065
     Dates: start: 20230712, end: 20230823
  6. METFORMIN [Concomitant]
     Active Substance: METFORMIN HYDROCHLORIDE
     Indication: Weight increased
     Dosage: UNK
     Route: 065
     Dates: start: 20230712, end: 20230823
  7. SUBOXONE [Concomitant]
     Active Substance: BUPRENORPHINE HYDROCHLORIDE\NALOXONE HYDROCHLORIDE
     Indication: Substance use disorder
     Dosage: UNK
     Route: 065
     Dates: start: 20230712

REACTIONS (2)
  - Abortion spontaneous [Unknown]
  - Maternal exposure during pregnancy [Unknown]

NARRATIVE: CASE EVENT DATE: 20230712
